FAERS Safety Report 8309411-5 (Version None)
Quarter: 2012Q2

REPORT INFORMATION
  Report Type: 
  Country: None (occurrence: None)
  Receive Date: 20120424
  Receipt Date: 20120424
  Transmission Date: 20120825
  Serious: Yes (Life-Threatening, Hospitalization)
  Sender: FDA-Public Use
  Company Number: None

PATIENT
  Sex: Female
  Weight: 60.6459 kg

DRUGS (2)
  1. OXALIPLATIN [Suspect]
     Indication: SMALL INTESTINE CARCINOMA
     Dosage: 136 MG 151 ML/N IV
     Route: 042
     Dates: start: 20111028
  2. OXALIPLATIN [Suspect]
     Indication: SMALL INTESTINE CARCINOMA
     Dosage: 136 MG 151 ML/N IV
     Route: 042
     Dates: start: 20111111

REACTIONS (7)
  - CHEST PAIN [None]
  - SWELLING FACE [None]
  - OROPHARYNGEAL SWELLING [None]
  - THROAT TIGHTNESS [None]
  - MUSCULAR WEAKNESS [None]
  - DYSARTHRIA [None]
  - TONGUE DISORDER [None]
